FAERS Safety Report 5494052-8 (Version None)
Quarter: 2007Q4

REPORT INFORMATION
  Report Type: 
  Country: None (occurrence: None)
  Receive Date: 20071023
  Receipt Date: 20071011
  Transmission Date: 20080405
  Serious: Yes (Other)
  Sender: FDA-Public Use
  Company Number: US-PFIZER INC-2007087069

PATIENT

DRUGS (1)
  1. CHANTIX [Suspect]

REACTIONS (2)
  - DECREASED ACTIVITY [None]
  - DEPRESSED MOOD [None]
